FAERS Safety Report 16318148 (Version 3)
Quarter: 2019Q2

REPORT INFORMATION
  Report Type: Report from Study
  Country: None (occurrence: US)
  Receive Date: 20190516
  Receipt Date: 20190625
  Transmission Date: 20190711
  Serious: Yes (Hospitalization, Other)
  Sender: FDA-Public Use
  Company Number: US-ABBVIE-19S-163-2780279-00

PATIENT
  Age: 70 Year
  Sex: Female
  Weight: 86.71 kg

DRUGS (2)
  1. CREON [Suspect]
     Active Substance: PANCRELIPASE AMYLASE\PANCRELIPASE LIPASE\PANCRELIPASE PROTEASE
     Indication: PANCREATITIS
     Route: 048
     Dates: start: 2005
  2. CREON [Suspect]
     Active Substance: PANCRELIPASE AMYLASE\PANCRELIPASE LIPASE\PANCRELIPASE PROTEASE
     Route: 048
     Dates: start: 201404

REACTIONS (20)
  - Foot operation [Unknown]
  - Obstruction [Recovered/Resolved]
  - Head injury [Unknown]
  - Cholecystectomy [Recovered/Resolved]
  - Gait disturbance [Unknown]
  - Nausea [Not Recovered/Not Resolved]
  - Bunion operation [Recovered/Resolved]
  - Colonoscopy [Unknown]
  - Parkinson^s disease [Not Recovered/Not Resolved]
  - Fall [Recovered/Resolved]
  - Hypertension [Not Recovered/Not Resolved]
  - Migraine [Not Recovered/Not Resolved]
  - Confusional state [Recovering/Resolving]
  - Arterial occlusive disease [Recovered/Resolved]
  - Nephropathy [Not Recovered/Not Resolved]
  - Cerebral haemorrhage [Recovering/Resolving]
  - Impaired gastric emptying [Not Recovered/Not Resolved]
  - Mobility decreased [Recovering/Resolving]
  - Memory impairment [Not Recovered/Not Resolved]
  - Dizziness [Not Recovered/Not Resolved]

NARRATIVE: CASE EVENT DATE: 2013
